FAERS Safety Report 4998648-9 (Version None)
Quarter: 2006Q2

REPORT INFORMATION
  Report Type: 
  Country: None (occurrence: None)
  Receive Date: 20060508
  Receipt Date: 20060420
  Transmission Date: 20061013
  Serious: Yes (Death)
  Sender: FDA-Public Use
  Company Number: 2006BL002262

PATIENT
  Age: 37 Year
  Sex: Female

DRUGS (11)
  1. DEXAMYTREX AUGENTROPFEN (DEXAMETHASONE/GENTAMICIN SULFATE) [Suspect]
     Dosage: TOPICAL
     Route: 061
     Dates: start: 19950601
  2. GENTAMYTREX AUGENSALBE (GENTAMICIN SULFATE) [Suspect]
     Dosage: TOPICAL
     Route: 061
  3. FLOXAL AUGENSALBE (EYE OINTMENT) (OFLOXACIN) [Suspect]
     Dosage: TOPICAL
     Route: 061
     Dates: start: 20050101
  4. FLOXAL AUGENTROPFEN (OFLOXACIN) [Suspect]
     Dosage: TOPICAL
     Route: 061
     Dates: start: 20050101
  5. DURATEARS (DURATEARS) [Suspect]
     Dosage: OPHTHALMIC
     Route: 047
  6. FUCITHALMIC (FUSIDIC ACID) [Suspect]
     Dosage: OPHTHALMIC
     Route: 047
  7. FML [Suspect]
     Dosage: OPHTHALMIC
     Route: 047
     Dates: start: 20020401
  8. EMADINE [Suspect]
     Dosage: OPHTHALMIC
     Route: 047
     Dates: start: 20020401
  9. OCULENTUM SIMPLEX (OCULENTUM SIMPLEX) [Suspect]
     Dates: start: 20050101
  10. CHLORAMPHENICOL [Suspect]
     Dosage: OPHTHALMIC
     Route: 047
  11. VENTOLIN [Concomitant]

REACTIONS (1)
  - MALIGNANT NEOPLASM OF EYE [None]
